FAERS Safety Report 13556490 (Version 1)
Quarter: 2017Q2

REPORT INFORMATION
  Report Type: Spontaneous
  Country: US (occurrence: US)
  Receive Date: 20170517
  Receipt Date: 20170517
  Transmission Date: 20170830
  Serious: No
  Sender: FDA-Public Use
  Company Number: US-SA-2017SA017494

PATIENT
  Age: 75 Year
  Sex: Male

DRUGS (4)
  1. TOUJEO [Suspect]
     Active Substance: INSULIN GLARGINE
     Indication: TYPE 2 DIABETES MELLITUS
     Dosage: DOSE:50 UNIT(S)
     Route: 065
     Dates: start: 201701
  2. SOLOSTAR [Concomitant]
     Active Substance: DEVICE
     Indication: TYPE 2 DIABETES MELLITUS
     Dates: start: 201701
  3. LEVEMIR [Concomitant]
     Active Substance: INSULIN DETEMIR
     Dosage: DOSE:60 UNIT(S)
  4. HUMALOG [Concomitant]
     Active Substance: INSULIN LISPRO
     Dosage: DOSE:35 UNIT(S)
     Dates: end: 201701

REACTIONS (3)
  - Blood glucose increased [Unknown]
  - Malaise [Unknown]
  - Product use issue [Unknown]

NARRATIVE: CASE EVENT DATE: 20170130
